FAERS Safety Report 6715469-7 (Version None)
Quarter: 2010Q2

REPORT INFORMATION
  Report Type: 
  Country: None (occurrence: None)
  Receive Date: 20100507
  Receipt Date: 20100423
  Transmission Date: 20101027
  Serious: Yes (Other)
  Sender: FDA-Public Use
  Company Number: PHHY2010US26372

PATIENT
  Sex: Female

DRUGS (6)
  1. ZOMETA [Suspect]
     Route: 042
  2. FEMARA [Concomitant]
     Dosage: UNK
  3. VITAMIN TAB [Concomitant]
  4. CALCIUM [Concomitant]
  5. NAPROXEN [Concomitant]
  6. BLOOD PRESSURE MEDICATIONS [Concomitant]

REACTIONS (1)
  - OSTEONECROSIS OF JAW [None]
